FAERS Safety Report 9644245 (Version 2)
Quarter: 2013Q4

REPORT INFORMATION
  Report Type: Report from Study
  Country: CN (occurrence: CN)
  Receive Date: 20131024
  Receipt Date: 20131028
  Transmission Date: 20140711
  Serious: Yes (Other)
  Sender: FDA-Public Use
  Company Number: CN-ROCHE-1293921

PATIENT
  Age: 70 Year
  Sex: Female
  Weight: 53 kg

DRUGS (6)
  1. XELODA [Suspect]
     Indication: COLON CANCER
     Route: 065
     Dates: start: 201304
  2. XELODA [Suspect]
     Indication: METASTASES TO LIVER
     Dosage: 8 COURSES
     Route: 065
  3. CIS-PLATINUM [Concomitant]
     Indication: COLON CANCER
  4. CIS-PLATINUM [Concomitant]
     Indication: METASTASES TO LIVER
  5. EPIRUBICIN [Concomitant]
     Indication: COLON CANCER
  6. EPIRUBICIN [Concomitant]
     Indication: METASTASES TO LIVER

REACTIONS (2)
  - Neoplasm [Not Recovered/Not Resolved]
  - Drug ineffective [Unknown]
